FAERS Safety Report 7612245-8 (Version None)
Quarter: 2011Q3

REPORT INFORMATION
  Report Type: 
  Country: None (occurrence: None)
  Receive Date: 20110715
  Receipt Date: 20110711
  Transmission Date: 20111222
  Serious: Yes (Death)
  Sender: FDA-Public Use
  Company Number: PHHY2011BR62425

PATIENT

DRUGS (1)
  1. EVEROLIMUS [Suspect]
     Indication: LUNG TRANSPLANT
     Dosage: UNK

REACTIONS (1)
  - DEATH [None]
